FAERS Safety Report 14519525 (Version 1)
Quarter: 2018Q1

REPORT INFORMATION
  Report Type: Spontaneous
  Country: CA (occurrence: CA)
  Receive Date: 20180212
  Receipt Date: 20180212
  Transmission Date: 20180509
  Serious: Yes (Hospitalization, Other)
  Sender: FDA-Public Use
  Company Number: CA-PFIZER INC-2018051482

PATIENT
  Age: 47 Year
  Sex: Female

DRUGS (16)
  1. REVATIO [Suspect]
     Active Substance: SILDENAFIL CITRATE
     Indication: PULMONARY HYPERTENSION
     Dosage: 20 MG, 3X/DAY
     Route: 048
     Dates: start: 20160629
  2. VITAMIN D /00107901/ [Concomitant]
     Active Substance: ERGOCALCIFEROL
  3. HYDROMORPH [Concomitant]
     Active Substance: HYDROMORPHONE
  4. WARFARIN [Concomitant]
     Active Substance: WARFARIN
  5. REPLAVITE /00058902/ [Concomitant]
  6. LANSOPRAZOLE. [Concomitant]
     Active Substance: LANSOPRAZOLE
  7. CARIPUL [Concomitant]
     Active Substance: EPOPROSTENOL
  8. TOLOXIN /00017701/ [Concomitant]
  9. GABAPENTIN. [Concomitant]
     Active Substance: GABAPENTIN
  10. FE /00023514/ [Concomitant]
  11. ACETAMINOPHEN. [Concomitant]
     Active Substance: ACETAMINOPHEN
  12. ATORVASTATIN [Concomitant]
     Active Substance: ATORVASTATIN
  13. DOCUSATE SODIUM. [Concomitant]
     Active Substance: DOCUSATE SODIUM
  14. ZINC. [Concomitant]
     Active Substance: ZINC
  15. MIDODRINE [Concomitant]
     Active Substance: MIDODRINE
  16. SENOKOT [Concomitant]
     Active Substance: SENNOSIDES

REACTIONS (2)
  - Loss of consciousness [Recovered/Resolved]
  - Hypotension [Recovered/Resolved]

NARRATIVE: CASE EVENT DATE: 20180201
